FAERS Safety Report 4867028-9 (Version None)
Quarter: 2005Q4

REPORT INFORMATION
  Report Type: 
  Country: None (occurrence: None)
  Receive Date: 20051220
  Receipt Date: 19991028
  Transmission Date: 20060501
  Serious: Yes (Hospitalization, Other)
  Sender: FDA-Public Use
  Company Number: 8-99111-102A

PATIENT
  Age: 26 Year
  Sex: Male

DRUGS (5)
  1. GEMTUZUMAB OZOGOMICIN [Suspect]
     Indication: ACUTE MYELOID LEUKAEMIA
     Dosage: 9 MG/M (2) (TOTAL DOSE: 16 MG/DOSE) INTRAVENOUS  2 DOS
     Route: 042
     Dates: start: 19990330, end: 19990421
  2. SPORANOX [Concomitant]
  3. ANZEMET [Concomitant]
  4. PLITICAN (ALIZAPRIDE HYDROCHLORIDE) [Concomitant]
  5. POLARAMINE [Concomitant]

REACTIONS (8)
  - EOSINOPHIL PERCENTAGE INCREASED [None]
  - LEUKOPENIA [None]
  - LYMPHOCYTE PERCENTAGE INCREASED [None]
  - NAUSEA [None]
  - NEUTROPENIA [None]
  - PLATELET COUNT DECREASED [None]
  - PYREXIA [None]
  - VOMITING [None]
